FAERS Safety Report 19817334 (Version 1)
Quarter: 2021Q3

REPORT INFORMATION
  Report Type: Spontaneous
  Country: US (occurrence: US)
  Receive Date: 20210910
  Receipt Date: 20210910
  Transmission Date: 20211014
  Serious: No
  Sender: FDA-Public Use
  Company Number: US-PAIPHARMA-2021-US-000062

PATIENT
  Age: 58 Year
  Sex: Male
  Weight: 167.83 kg

DRUGS (1)
  1. LACTULOSE SOLUTION USP, AF [Suspect]
     Active Substance: LACTULOSE
     Indication: HEPATIC CIRRHOSIS
     Dosage: 1 DOSE EVERY DAY FOR APPROXIMATELY 6 YEARS
     Route: 048
     Dates: start: 2015

REACTIONS (3)
  - Product use in unapproved indication [Not Recovered/Not Resolved]
  - Nausea [Not Recovered/Not Resolved]
  - Diarrhoea [Not Recovered/Not Resolved]

NARRATIVE: CASE EVENT DATE: 2015
